FAERS Safety Report 11090368 (Version 1)
Quarter: 2015Q2

REPORT INFORMATION
  Report Type: Spontaneous
  Country: JP (occurrence: None)
  Receive Date: 20150501
  Receipt Date: 20150501
  Transmission Date: 20150821
  Serious: Yes (Other)
  Sender: FDA-Public Use
  Company Number: 2015JP003754

PATIENT
  Age: 62 Year
  Sex: Female

DRUGS (10)
  1. PREDONINE /00016201/ (PREDNISOLONE) [Concomitant]
  2. BONALON (ALENDRONATE SODIUM) [Concomitant]
  3. RIVOTRIL [Concomitant]
     Active Substance: CLONAZEPAM
  4. SELBEX (TEPRENONE) [Concomitant]
     Active Substance: TEPRENONE
  5. LYRICA [Concomitant]
     Active Substance: PREGABALIN
  6. METOLATE (METHOTREXATE) [Concomitant]
  7. SAIREITO /08000901/ (ALISMA PLANTAGO-AQUATICA VAR. ORIENTALE TUBER, ATRACTYLODES LANCEA RHIZOME, BUPLEURUM FALCATUM ROOT, CINNAMOMUM CASSIA BARK, GLYCYRRHIZA SPP. ROOT, PANAX GINSENG ROOT, PINELLIA TERNATA TUBER, POLYPORUS UMBELLATUS SCLEROTIUM, PORIA COCOS SCLEROTIUM, SCUTELLARIA BAICALENSIS ROOT, ZINGIBER OFFICINALE RHIZOME, ZIZIPHUS JUJUBA VAR. INERMIS FRUIT) [Concomitant]
  8. REGNITE (GABAPENTIN ENACARBIL) TABLET, 300MG [Suspect]
     Active Substance: GABAPENTIN ENACARBIL
     Indication: RESTLESS LEGS SYNDROME
     Route: 048
     Dates: start: 20130930
  9. HIRUDOID /00723701/ (HEPARINOID) [Concomitant]
  10. SELTOUCH (FELBINAC) [Concomitant]
     Active Substance: FELBINAC

REACTIONS (4)
  - Asthma [None]
  - Influenza [None]
  - Pneumonia [None]
  - Nasopharyngitis [None]

NARRATIVE: CASE EVENT DATE: 201402
